FAERS Safety Report 12658540 (Version 1)
Quarter: 2016Q3

REPORT INFORMATION
  Report Type: Spontaneous
  Country: US (occurrence: US)
  Receive Date: 20160817
  Receipt Date: 20160817
  Transmission Date: 20161109
  Serious: Yes (Other)
  Sender: FDA-Public Use
  Company Number: US-BAYER-2016-159585

PATIENT
  Age: 69 Year
  Sex: Male
  Weight: 68.27 kg

DRUGS (3)
  1. CLARITIN-D 24 HOUR [Interacting]
     Active Substance: LORATADINE\PSEUDOEPHEDRINE SULFATE
     Indication: LACRIMATION INCREASED
  2. CLARITIN-D 24 HOUR [Suspect]
     Active Substance: LORATADINE\PSEUDOEPHEDRINE SULFATE
     Indication: EYE PRURITUS
     Dosage: 1 DF, ONCE
     Route: 048
     Dates: start: 20160813, end: 20160813
  3. METOPROLOL. [Concomitant]
     Active Substance: METOPROLOL

REACTIONS (7)
  - Loss of consciousness [Recovered/Resolved]
  - Somnolence [Recovered/Resolved]
  - Drug interaction [None]
  - Dyspnoea [Recovered/Resolved]
  - Depressed level of consciousness [Recovered/Resolved]
  - Fear of death [None]
  - Respiratory arrest [None]

NARRATIVE: CASE EVENT DATE: 20160813
